FAERS Safety Report 5793339-9 (Version None)
Quarter: 2008Q2

REPORT INFORMATION
  Report Type: 
  Country: None (occurrence: None)
  Receive Date: 20080627
  Receipt Date: 20080619
  Transmission Date: 20081010
  Serious: Yes (Other)
  Sender: FDA-Public Use
  Company Number: B0359485A

PATIENT
  Age: 30 Year
  Sex: Female

DRUGS (6)
  1. SEROXAT [Suspect]
     Indication: DEPRESSION
     Route: 048
     Dates: start: 20000202
  2. ST JOHNS WORT [Concomitant]
     Dates: start: 20041201
  3. METHYLPHENIDATE HCL [Concomitant]
     Indication: ATTENTION DEFICIT/HYPERACTIVITY DISORDER
     Dates: start: 20061101, end: 20061101
  4. DEXAMPHETAMINE [Concomitant]
     Indication: ATTENTION DEFICIT/HYPERACTIVITY DISORDER
     Dates: start: 20061129, end: 20070401
  5. ATOMOXETINE HCL [Concomitant]
     Indication: ATTENTION DEFICIT/HYPERACTIVITY DISORDER
     Dates: start: 20070404
  6. AMITRIPTYLINE HCL [Concomitant]
     Indication: PAIN
     Dates: start: 20080215

REACTIONS (9)
  - AGGRESSION [None]
  - AGITATION [None]
  - ANGER [None]
  - DIZZINESS [None]
  - EMOTIONAL DISORDER [None]
  - NAUSEA [None]
  - PARAESTHESIA [None]
  - SUICIDAL BEHAVIOUR [None]
  - WITHDRAWAL SYNDROME [None]
